FAERS Safety Report 13970252 (Version 4)
Quarter: 2018Q1

REPORT INFORMATION
  Report Type: Spontaneous
  Country: AU (occurrence: AU)
  Receive Date: 20170914
  Receipt Date: 20180104
  Transmission Date: 20180508
  Serious: Yes (Death)
  Sender: FDA-Public Use
  Company Number: AU-PFIZER INC-2017394886

PATIENT
  Age: 10 Year
  Sex: Male
  Weight: 26 kg

DRUGS (15)
  1. ASPIRIN /00002701/ [Concomitant]
     Active Substance: ASPIRIN
     Dosage: 50 MG, DAILY (NIGHT)
  2. NILSTAT /00036501/ [Concomitant]
     Dosage: 1 ML, DAILY
  3. MOVICOL [Concomitant]
     Active Substance: POLYETHYLENE GLYCOL 3350\POTASSIUM CHLORIDE\SODIUM BICARBONATE\SODIUM CHLORIDE
     Dosage: 0.5 DF, UNK
  4. NIFEDIPINE ARROW [Concomitant]
     Dosage: 20 MG, 2X/DAY
  5. MAGMIN [Concomitant]
     Active Substance: MAGNESIUM ASPARTATE
     Dosage: 0.5 DF, DAILY
  6. COENZYME Q10 [Concomitant]
     Active Substance: UBIDECARENONE
     Dosage: 75 MG, DAILY (NIGHT)
  7. SALT [Concomitant]
     Active Substance: SODIUM CHLORIDE
     Dosage: 5 G, UNK
  8. CALTRATE [Concomitant]
     Active Substance: CALCIUM CARBONATE
     Dosage: 2 DF, DAILY (MORNING)
  9. BACTROBAN [Concomitant]
     Active Substance: MUPIROCIN\MUPIROCIN CALCIUM
     Dosage: TO PD CATHETER EXIT SITE
  10. SODIBIC [Concomitant]
     Dosage: 1 DF, DAILY
  11. CALCITRIOL. [Concomitant]
     Active Substance: CALCITRIOL
     Dosage: 0.25 UG, M/W/F
  12. MIRCERA [Concomitant]
     Active Substance: METHOXY POLYETHYLENE GLYCOL-EPOETIN BETA
     Dosage: 75 UG, EVERY 2 WEEKS
  13. PHOSPHATE /01053101/ [Concomitant]
     Active Substance: SODIUM PHOSPHATE\SODIUM PHOSPHATE, MONOBASIC
     Dosage: 0.25 DF, DAILY
  14. GENOTROPIN [Suspect]
     Active Substance: SOMATROPIN
     Dosage: UNK
  15. LOSARTAN. [Concomitant]
     Active Substance: LOSARTAN
     Dosage: 12.5 MG, 2X/DAY
     Dates: start: 20170512

REACTIONS (3)
  - Haemorrhage intracranial [Fatal]
  - Hypertension [Fatal]
  - Renal failure [Fatal]

NARRATIVE: CASE EVENT DATE: 201707
